FAERS Safety Report 9284807 (Version 2)
Quarter: 2013Q2

REPORT INFORMATION
  Report Type: Spontaneous
  Country: US (occurrence: US)
  Receive Date: 20130513
  Receipt Date: 20130613
  Transmission Date: 20140414
  Serious: Yes (Other)
  Sender: FDA-Public Use
  Company Number: US-009507513-1305USA003290

PATIENT
  Age: 58 Year
  Sex: Female

DRUGS (3)
  1. FOSAMAX [Suspect]
     Route: 048
  2. CALCIUM (UNSPECIFIED) [Concomitant]
     Dosage: 600 MG, BID
  3. VITAMIN D (UNSPECIFIED) [Concomitant]
     Dosage: 1000 IU DAILY

REACTIONS (1)
  - Femur fracture [Recovering/Resolving]
